FAERS Safety Report 7548384-X (Version None)
Quarter: 2011Q2

REPORT INFORMATION
  Report Type: 
  Country: None (occurrence: None)
  Receive Date: 20110615
  Receipt Date: 20110601
  Transmission Date: 20111010
  Serious: Yes (Other)
  Sender: FDA-Public Use
  Company Number: GR-AMGEN-US408713

PATIENT
  Age: 61 Year
  Sex: Female
  Weight: 82 kg

DRUGS (4)
  1. ENBREL [Suspect]
     Indication: RHEUMATOID ARTHRITIS
     Dosage: 50 MG, QWK
     Route: 058
     Dates: start: 20090114, end: 20100308
  2. METHYLPREDNISOLONE [Concomitant]
     Dosage: UNK UNK, UNK
     Route: 048
  3. METHOTREXATE [Suspect]
     Dosage: 12.5 MG, QWK
     Route: 048
  4. METHOTREXATE [Suspect]
     Dosage: 20 MG, QWK
     Route: 048
     Dates: start: 20100213

REACTIONS (1)
  - DYSPNOEA [None]
